FAERS Safety Report 8600926-9 (Version None)
Quarter: 2012Q3

REPORT INFORMATION
  Report Type: 
  Country: None (occurrence: None)
  Receive Date: 20120817
  Receipt Date: 20120813
  Transmission Date: 20120928
  Serious: Yes (Death, Other)
  Sender: FDA-Public Use
  Company Number: GB-GENZYME-MOZO-1000657

PATIENT
  Sex: Male
  Weight: 72.6 kg

DRUGS (25)
  1. DAUNORUBICIN HCL [Concomitant]
     Dosage: 70 MG, QD
     Route: 042
     Dates: start: 20120203, end: 20120203
  2. POTASSIUM CHLORIDE [Concomitant]
     Indication: HYPOKALAEMIA
  3. NICOTINE [Concomitant]
     Indication: PRODUCT USED FOR UNKNOWN INDICATION
     Dosage: 1 UNK, QD
     Route: 062
  4. FLUTICASONE PROPIONATE/SALMETEROL [Concomitant]
     Indication: CHRONIC OBSTRUCTIVE PULMONARY DISEASE
     Dosage: 1 OTHER, BID
     Route: 050
  5. MOZOBIL [Suspect]
     Indication: ACUTE MYELOID LEUKAEMIA
     Dosage: 17.4 MG, QD
     Route: 058
     Dates: start: 20120130, end: 20120130
  6. ACETAMINOPHEN AND CODEINE PHOSPHATE [Concomitant]
     Indication: PAIN
     Dosage: 8 UNK, QID
     Route: 065
  7. ONDANSETRON [Concomitant]
     Indication: ANTIEMETIC SUPPORTIVE CARE
     Dosage: 8 MG, BID
     Route: 065
     Dates: start: 20120130, end: 20120207
  8. POTASSIUM CHLORIDE [Concomitant]
     Indication: DIARRHOEA
     Dosage: 3 OTHER, QID
     Route: 065
     Dates: start: 20120102, end: 20120208
  9. ALLOPURINOL [Concomitant]
     Indication: PROPHYLAXIS
     Dosage: 300 MG, QD
     Route: 065
     Dates: start: 20120130, end: 20120207
  10. MOZOBIL [Suspect]
     Dosage: 17.4 MG, QD
     Route: 058
     Dates: start: 20120201, end: 20120204
  11. DAUNORUBICIN HCL [Concomitant]
     Dosage: 70 MG, QD
     Route: 042
     Dates: start: 20120201, end: 20120201
  12. CYCLIZINE [Concomitant]
     Indication: NAUSEA
     Dosage: 50 MG, TID
     Route: 065
     Dates: start: 20120130, end: 20120207
  13. FUROSEMIDE [Concomitant]
     Indication: PRODUCT USED FOR UNKNOWN INDICATION
     Dosage: 40 MG, QD
     Route: 065
     Dates: start: 20120206
  14. IPRATROPIUM BROMIDE [Concomitant]
     Indication: CHRONIC OBSTRUCTIVE PULMONARY DISEASE
     Dosage: 2 OTHER, QD
     Route: 050
  15. CHLORDIAZEPOXIDE [Concomitant]
     Indication: ANXIETY
     Dosage: 10 MG, PRN
  16. CLOFARABINE [Suspect]
     Dosage: 37 MG, QD
     Route: 042
     Dates: start: 20120202, end: 20120205
  17. VANCOMYCIN [Suspect]
     Indication: SEPSIS
     Dosage: 1 G, BID
     Route: 042
     Dates: start: 20120205, end: 20120207
  18. ITRACONAZOLE [Concomitant]
     Indication: ANTIFUNGAL TREATMENT
     Dosage: 200 MG, BID
     Route: 065
     Dates: start: 20120130, end: 20120206
  19. ACYCLOVIR [Concomitant]
     Indication: ANTIVIRAL TREATMENT
     Dosage: 400 MG, BID
     Route: 065
     Dates: start: 20120130
  20. MEROPENEM [Concomitant]
     Indication: SEPSIS
     Dosage: 1 G, TID
     Route: 042
     Dates: start: 20120131, end: 20120207
  21. MEROPENEM [Concomitant]
     Dosage: 500 MG, BID
     Route: 065
     Dates: start: 20120208
  22. CLOFARABINE [Suspect]
     Indication: ACUTE MYELOID LEUKAEMIA
     Dosage: 37 MG, QD
     Route: 042
     Dates: start: 20120130, end: 20120130
  23. ACETAMINOPHEN AND CODEINE PHOSPHATE [Concomitant]
     Dosage: 500 UNK, QID
     Route: 065
  24. CALCIUM CARBONATE [Concomitant]
     Indication: HYPOCALCAEMIA
     Dosage: 2 OTHER, QD
     Route: 065
     Dates: start: 20120204
  25. DAUNORUBICIN HCL [Concomitant]
     Indication: ACUTE MYELOID LEUKAEMIA
     Dosage: 70 MG, QD
     Route: 042
     Dates: start: 20120130, end: 20120130

REACTIONS (2)
  - RENAL FAILURE ACUTE [None]
  - ACUTE MYELOID LEUKAEMIA [None]
